FAERS Safety Report 23469963 (Version 6)
Quarter: 2024Q3

REPORT INFORMATION
  Report Type: Report from Study
  Country: US (occurrence: US)
  Receive Date: 20240202
  Receipt Date: 20240920
  Transmission Date: 20241017
  Serious: Yes (Other)
  Sender: GLAXOSMITHKLINE
  Company Number: US-GLAXOSMITHKLINE-US2024AMR012594

PATIENT

DRUGS (1)
  1. NIRAPARIB [Suspect]
     Active Substance: NIRAPARIB
     Indication: Ovarian cancer
     Dosage: 300 MG, QD
     Route: 048
     Dates: start: 202302

REACTIONS (8)
  - Myocardial infarction [Recovered/Resolved]
  - Dyspepsia [Not Recovered/Not Resolved]
  - Chest discomfort [Recovered/Resolved]
  - Vertigo [Recovered/Resolved]
  - Sinusitis [Recovered/Resolved]
  - Back pain [Not Recovered/Not Resolved]
  - Product dose omission in error [Unknown]
  - Product dose omission issue [Unknown]

NARRATIVE: CASE EVENT DATE: 20240914
